FAERS Safety Report 7391188-1 (Version None)
Quarter: 2011Q2

REPORT INFORMATION
  Report Type: 
  Country: None (occurrence: None)
  Receive Date: 20110404
  Receipt Date: 20100518
  Transmission Date: 20111010
  Serious: Yes (Other)
  Sender: FDA-Public Use
  Company Number: US-PFIZER INC-2010063119

PATIENT
  Sex: Male
  Weight: 86.168 kg

DRUGS (3)
  1. ZOLOFT [Suspect]
     Indication: DEPRESSION
     Dosage: UNK, DAILY
     Route: 048
     Dates: start: 20090501, end: 20091001
  2. TRAZODONE [Concomitant]
     Indication: INSOMNIA
     Dosage: UNK
  3. BUSPAR [Concomitant]
     Indication: ANXIETY
     Dosage: UNK

REACTIONS (4)
  - RESTLESS LEGS SYNDROME [None]
  - NIGHTMARE [None]
  - NAUSEA [None]
  - DIZZINESS [None]
